FAERS Safety Report 16976847 (Version 1)
Quarter: 2019Q4

REPORT INFORMATION
  Report Type: Spontaneous
  Country: US (occurrence: US)
  Receive Date: 20191030
  Receipt Date: 20191030
  Transmission Date: 20200122
  Serious: No
  Sender: FDA-Public Use
  Company Number: US-009507513-1910USA013498

PATIENT

DRUGS (1)
  1. ENTEREG [Suspect]
     Active Substance: ALVIMOPAN
     Dosage: UNK
     Route: 048
     Dates: start: 20191020

REACTIONS (1)
  - Gastrointestinal tube insertion [Unknown]

NARRATIVE: CASE EVENT DATE: 20191020
